FAERS Safety Report 7784758-X (Version None)
Quarter: 2011Q3

REPORT INFORMATION
  Report Type: 
  Country: None (occurrence: None)
  Receive Date: 20110928
  Receipt Date: 20110921
  Transmission Date: 20111222
  Serious: Yes (Hospitalization)
  Sender: FDA-Public Use
  Company Number: US-B.I. PHARMACEUTICALS,INC./RIDGEFIELD-2011-BP-19862BP

PATIENT
  Sex: Male

DRUGS (22)
  1. PRADAXA [Suspect]
     Indication: ATRIAL FIBRILLATION
     Dosage: 300 MG
     Route: 048
     Dates: end: 20110730
  2. METFORMIN HCL [Concomitant]
     Indication: DIABETES MELLITUS
     Route: 048
     Dates: end: 20110701
  3. AMITRIPTYLINE HCL [Concomitant]
     Indication: NEUROPATHY PERIPHERAL
  4. LANTUS [Concomitant]
  5. PROVIGIL [Concomitant]
     Indication: DEPRESSED LEVEL OF CONSCIOUSNESS
  6. ENDUR-C [Concomitant]
  7. ENDUR-ACIN [Concomitant]
  8. ENDUR-VM [Concomitant]
  9. NEXIUM [Concomitant]
     Indication: GASTROOESOPHAGEAL REFLUX DISEASE
     Dosage: 40 MG
     Route: 048
  10. NEXIUM [Concomitant]
  11. MORPHINE [Concomitant]
  12. WARFARIN SODIUM [Concomitant]
  13. TESTOSTERONE [Concomitant]
  14. ZOLPIDEM [Concomitant]
     Indication: INSOMNIA
  15. INSULIN [Concomitant]
     Indication: DIABETES MELLITUS
     Dates: start: 20110701
  16. CAL-MAG [Concomitant]
  17. GLYBURIDE [Concomitant]
     Indication: DIABETES MELLITUS
     Route: 048
     Dates: end: 20110701
  18. LEVOTHYROXINE [Concomitant]
     Indication: HYPOTHYROIDISM
     Dosage: 1.75 MG
     Route: 048
  19. MORPHINE CONTIN [Concomitant]
     Indication: PAIN
     Route: 048
  20. FISH OIL [Concomitant]
  21. OSTER-BI [Concomitant]
     Indication: ARTHROPATHY
  22. MORPHINE [Concomitant]
     Indication: PAIN IN EXTREMITY
     Route: 048

REACTIONS (7)
  - MALAISE [None]
  - PULMONARY MASS [None]
  - PULMONARY EMBOLISM [None]
  - WEGENER'S GRANULOMATOSIS [None]
  - DECREASED APPETITE [None]
  - CHEST PAIN [None]
  - WEIGHT DECREASED [None]
